FAERS Safety Report 13906799 (Version 1)
Quarter: 2017Q3

REPORT INFORMATION
  Report Type: Spontaneous
  Country: US (occurrence: US)
  Receive Date: 20170825
  Receipt Date: 20170825
  Transmission Date: 20171127
  Serious: Yes (Hospitalization, Other)
  Sender: FDA-Public Use
  Company Number: US-OTSUKA-2017_018155

PATIENT
  Sex: Male

DRUGS (2)
  1. CILOSTAZOL. [Suspect]
     Active Substance: CILOSTAZOL
     Indication: PRODUCT USED FOR UNKNOWN INDICATION
     Dosage: UNK
     Route: 065
  2. PLETAL [Suspect]
     Active Substance: CILOSTAZOL
     Indication: INTERMITTENT CLAUDICATION
     Dosage: 100 MG, BID
     Route: 065
     Dates: start: 2000

REACTIONS (8)
  - Transient ischaemic attack [Recovered/Resolved]
  - Hypertension [Recovered/Resolved]
  - Dehydration [Unknown]
  - Atrial fibrillation [Not Recovered/Not Resolved]
  - Creatinine renal clearance abnormal [Unknown]
  - Renal impairment [Not Recovered/Not Resolved]
  - Tachyarrhythmia [Recovered/Resolved]
  - Therapeutic response unexpected [Unknown]

NARRATIVE: CASE EVENT DATE: 2017
